FAERS Safety Report 9491902 (Version 2)
Quarter: 2013Q3

REPORT INFORMATION
  Report Type: Report from Study
  Country: US (occurrence: US)
  Receive Date: 20130830
  Receipt Date: 20130927
  Transmission Date: 20140515
  Serious: Yes (Other)
  Sender: FDA-Public Use
  Company Number: US-US-EMD SERONO, INC.-7233645

PATIENT
  Age: 61 Year
  Sex: Female

DRUGS (4)
  1. REBIF [Suspect]
     Indication: MULTIPLE SCLEROSIS
     Route: 058
     Dates: start: 20130406
  2. MICARDIS [Concomitant]
     Indication: BLOOD PRESSURE
  3. FOSAMAX [Concomitant]
     Indication: OSTEOPENIA
  4. KEFLEX                             /00145501/ [Concomitant]
     Indication: URINARY TRACT INFECTION

REACTIONS (5)
  - Porphyria non-acute [Recovering/Resolving]
  - Blood iron increased [Not Recovered/Not Resolved]
  - Liver function test abnormal [Not Recovered/Not Resolved]
  - Injection site bruising [Not Recovered/Not Resolved]
  - Injection site erythema [Not Recovered/Not Resolved]
